FAERS Safety Report 5449518-3 (Version None)
Quarter: 2007Q3

REPORT INFORMATION
  Report Type: 
  Country: None (occurrence: None)
  Receive Date: 20070907
  Receipt Date: 20070822
  Transmission Date: 20080115
  Serious: Yes (Other)
  Sender: FDA-Public Use
  Company Number: 2007US001634

PATIENT
  Age: 35 Year
  Sex: Female

DRUGS (2)
  1. AMEVIVE [Suspect]
     Indication: PSORIASIS
     Dosage: 15 MG, WEEKLY, INTRAMUSCULAR
     Route: 030
     Dates: start: 20070402
  2. METHOTREXATE SODIUM [Concomitant]

REACTIONS (2)
  - PSORIASIS [None]
  - UTERINE LEIOMYOMA [None]
